FAERS Safety Report 5348423-0 (Version None)
Quarter: 2007Q2

REPORT INFORMATION
  Report Type: 
  Country: None (occurrence: None)
  Receive Date: 20070606
  Receipt Date: 20070523
  Transmission Date: 20071010
  Serious: Yes (Hospitalization, Other)
  Sender: FDA-Public Use
  Company Number: US-PFIZER INC-2007012722

PATIENT
  Sex: Female
  Weight: 81.6 kg

DRUGS (6)
  1. CELEBREX [Suspect]
     Indication: ARTHRITIS
     Route: 048
  2. CELEBREX [Suspect]
     Indication: PAIN
  3. CELEBREX [Suspect]
     Indication: INFLAMMATION
  4. BEXTRA [Suspect]
     Indication: ARTHRITIS
     Route: 048
     Dates: start: 20021004
  5. BEXTRA [Suspect]
     Indication: PAIN
  6. BEXTRA [Suspect]
     Indication: INFLAMMATION

REACTIONS (2)
  - MYOCARDIAL INFARCTION [None]
  - THROMBOSIS [None]
